FAERS Safety Report 9472293 (Version 1)
Quarter: 2013Q3

REPORT INFORMATION
  Report Type: Spontaneous
  Country: KR (occurrence: KR)
  Receive Date: 20130823
  Receipt Date: 20130823
  Transmission Date: 20140515
  Serious: Yes (Hospitalization)
  Sender: FDA-Public Use
  Company Number: KR-JNJFOC-20130806744

PATIENT
  Age: 41 Year
  Sex: Female
  Weight: 61.2 kg

DRUGS (10)
  1. DOXIL [Suspect]
     Indication: OVARIAN CANCER
     Route: 042
     Dates: start: 20130722
  2. EC145 [Suspect]
     Indication: OVARIAN CANCER
     Dosage: DAYS 1, 3, 5, 15, 17, 19
     Route: 042
     Dates: start: 20130722
  3. FOLIC ACID [Suspect]
     Indication: SINGLE PHOTON EMISSION COMPUTERISED TOMOGRAM
     Route: 042
     Dates: start: 20130709
  4. EC20 [Suspect]
     Indication: SINGLE PHOTON EMISSION COMPUTERISED TOMOGRAM
     Route: 042
     Dates: start: 20130709
  5. MAGNESIUM HYDROXIDE [Concomitant]
     Indication: CONSTIPATION
     Route: 065
  6. FAMOTIDINE [Concomitant]
     Indication: PROPHYLACTIC CHEMOTHERAPY
     Route: 065
     Dates: start: 20130722, end: 20130722
  7. CHLORPHENIRAMINE MALEATE [Concomitant]
     Indication: PROPHYLACTIC CHEMOTHERAPY
     Route: 065
     Dates: start: 20130722, end: 20130722
  8. METOCLOPRAMIDE [Concomitant]
     Indication: NAUSEA
     Route: 065
     Dates: start: 20130801
  9. ULTRACET [Concomitant]
     Indication: PAIN
     Route: 065
     Dates: start: 20130802, end: 20130802
  10. ULTRACET [Concomitant]
     Indication: PYREXIA
     Route: 065
     Dates: start: 20130802, end: 20130802

REACTIONS (5)
  - Neutrophil count decreased [Unknown]
  - Infection [Unknown]
  - Pyrexia [Recovered/Resolved]
  - Anaemia [Unknown]
  - Abdominal pain [Unknown]
